FAERS Safety Report 23224894 (Version 2)
Quarter: 2023Q4

REPORT INFORMATION
  Report Type: Spontaneous
  Country: AU (occurrence: None)
  Receive Date: 20231124
  Receipt Date: 20231205
  Transmission Date: 20240110
  Serious: Yes (Hospitalization, Other)
  Sender: FDA-Public Use
  Company Number: 2023A264013

PATIENT
  Sex: Female
  Weight: 57 kg

DRUGS (4)
  1. OLAPARIB [Suspect]
     Active Substance: OLAPARIB
     Indication: Gastric cancer
     Route: 048
  2. OLAPARIB [Suspect]
     Active Substance: OLAPARIB
     Indication: Gastrooesophageal cancer
     Route: 048
  3. OLAPARIB [Suspect]
     Active Substance: OLAPARIB
     Indication: Gastric cancer
     Route: 048
     Dates: start: 20230925
  4. OLAPARIB [Suspect]
     Active Substance: OLAPARIB
     Indication: Gastrooesophageal cancer
     Route: 048
     Dates: start: 20230925

REACTIONS (5)
  - Malignant neoplasm progression [Unknown]
  - Drug intolerance [Unknown]
  - Pancytopenia [Recovering/Resolving]
  - Haemoglobin decreased [Unknown]
  - Off label use [Unknown]
